FAERS Safety Report 7305060-6 (Version None)
Quarter: 2011Q1

REPORT INFORMATION
  Report Type: 
  Country: None (occurrence: None)
  Receive Date: 20110222
  Receipt Date: 20110126
  Transmission Date: 20110831
  Serious: No
  Sender: FDA-Public Use
  Company Number: US-B.I. PHARMACEUTICALS,INC./RIDGEFIELD-2010-BP-13182BP

PATIENT
  Sex: Female
  Weight: 62.14 kg

DRUGS (15)
  1. DIOVAN HCL [Concomitant]
  2. ALBUTEROL [Concomitant]
  3. DILTIAZEM (CARTIZEN) HCL [Concomitant]
  4. PRADAXA [Suspect]
     Indication: STENT PLACEMENT
  5. PRADAXA [Suspect]
     Indication: CARDIAC PACEMAKER INSERTION
  6. PLAVIX [Concomitant]
     Indication: CARDIOVASCULAR EVENT PROPHYLAXIS
     Route: 048
     Dates: start: 20090101
  7. VITAMIN B-12 [Concomitant]
  8. AZITHROMYCIN [Concomitant]
  9. PRADAXA [Suspect]
     Indication: ATRIAL FIBRILLATION
     Dosage: 300 MG
     Route: 048
     Dates: start: 20101115
  10. ASPIRIN [Concomitant]
     Indication: CARDIOVASCULAR EVENT PROPHYLAXIS
     Dosage: 81 MG
     Route: 048
  11. ALPRAZOLAM [Concomitant]
     Indication: ANXIETY
  12. VITAMIN D [Concomitant]
  13. ETHAMBUTOL HYDROCHLORIDE [Concomitant]
  14. CLONIDINE [Concomitant]
  15. HYDROCODONE [Concomitant]

REACTIONS (4)
  - ATRIAL FIBRILLATION [None]
  - GINGIVAL DISORDER [None]
  - FATIGUE [None]
  - ARTHRALGIA [None]
